FAERS Safety Report 26073490 (Version 1)
Quarter: 2025Q4

REPORT INFORMATION
  Report Type: Spontaneous
  Country: ZA (occurrence: ZA)
  Receive Date: 20251121
  Receipt Date: 20251121
  Transmission Date: 20260119
  Serious: Yes (Death)
  Sender: MERCK SHARP & DOHME LLC
  Company Number: ZA-009507513-2352356

PATIENT
  Age: 56 Year
  Sex: Male

DRUGS (1)
  1. KEYTRUDA [Suspect]
     Active Substance: PEMBROLIZUMAB
     Indication: Malignant melanoma

REACTIONS (1)
  - Death [Fatal]
